FAERS Safety Report 10191399 (Version 1)
Quarter: 2014Q2

REPORT INFORMATION
  Report Type: Spontaneous
  Country: US (occurrence: None)
  Receive Date: 20140522
  Receipt Date: 20140522
  Transmission Date: 20141212
  Serious: No
  Sender: FDA-Public Use
  Company Number: None

PATIENT
  Age: 11 Year
  Sex: Male
  Weight: 27.22 kg

DRUGS (1)
  1. METHYLPHENID [Suspect]
     Indication: ATTENTION DEFICIT/HYPERACTIVITY DISORDER
     Route: 048
     Dates: start: 20140131, end: 20140430

REACTIONS (6)
  - Headache [None]
  - Dry mouth [None]
  - Abdominal discomfort [None]
  - Abnormal behaviour [None]
  - Product substitution issue [None]
  - Drug effect decreased [None]
